FAERS Safety Report 9726469 (Version 2)
Quarter: 2013Q4

REPORT INFORMATION
  Report Type: Spontaneous
  Country: DE (occurrence: DE)
  Receive Date: 20131203
  Receipt Date: 20131211
  Transmission Date: 20140711
  Serious: Yes (Death, Hospitalization, Other)
  Sender: FDA-Public Use
  Company Number: DE-VERTEX PHARMACEUTICALS INC-2013-011525

PATIENT
  Sex: 0

DRUGS (5)
  1. INCIVO [Suspect]
     Indication: HEPATITIS C
     Route: 048
  2. INCIVO [Suspect]
     Dosage: UNK
     Route: 048
  3. RIBAVIRIN [Suspect]
     Indication: HEPATITIS C
     Dosage: UNK
     Route: 065
  4. PEGINTERFERON ALFA [Suspect]
     Indication: HEPATITIS C
     Route: 065
  5. PEGINTERFERON ALFA [Suspect]
     Route: 065

REACTIONS (6)
  - Gastrointestinal infection [Fatal]
  - Sepsis [Fatal]
  - Infection [Unknown]
  - Hepatic cirrhosis [Unknown]
  - Anaemia [Unknown]
  - Treatment failure [Unknown]
